FAERS Safety Report 8325606-9 (Version None)
Quarter: 2012Q2

REPORT INFORMATION
  Report Type: 
  Country: None (occurrence: None)
  Receive Date: 20120501
  Receipt Date: 20100512
  Transmission Date: 20120825
  Serious: No
  Sender: FDA-Public Use
  Company Number: US-TEVA-2010002725

PATIENT
  Sex: Female
  Weight: 72.64 kg

DRUGS (2)
  1. LITHIUM CARBONATE [Concomitant]
     Dates: start: 20101001
  2. NUVIGIL [Suspect]
     Indication: BIPOLAR II DISORDER
     Dosage: 150 MILLIGRAM;
     Route: 048
     Dates: start: 20100512

REACTIONS (2)
  - HEADACHE [None]
  - NAUSEA [None]
